FAERS Safety Report 11017327 (Version 2)
Quarter: 2015Q2

REPORT INFORMATION
  Report Type: Spontaneous
  Country: US (occurrence: US)
  Receive Date: 20150412
  Receipt Date: 20150525
  Transmission Date: 20150821
  Serious: No
  Sender: FDA-Public Use
  Company Number: US-JNJFOC-20140201411

PATIENT
  Sex: Female
  Weight: 163.3 kg

DRUGS (2)
  1. ORTHO EVRA [Suspect]
     Active Substance: ETHINYL ESTRADIOL\NORELGESTROMIN
     Indication: CONTRACEPTION
     Route: 062
     Dates: start: 2012
  2. PHENTERMINE [Concomitant]
     Active Substance: PHENTERMINE
     Route: 048
     Dates: start: 2013

REACTIONS (4)
  - Weight decreased [Unknown]
  - Pain [Recovered/Resolved]
  - Drug dose omission [Unknown]
  - Cyst [Not Recovered/Not Resolved]

NARRATIVE: CASE EVENT DATE: 2013
